FAERS Safety Report 12761863 (Version 1)
Quarter: 2016Q3

REPORT INFORMATION
  Report Type: Spontaneous
  Country: US (occurrence: US)
  Receive Date: 20160915
  Receipt Date: 20160915
  Transmission Date: 20161109
  Serious: Yes (Hospitalization)
  Sender: FDA-Public Use
  Company Number: None

PATIENT
  Sex: Female

DRUGS (1)
  1. COPAXONE [Suspect]
     Active Substance: GLATIRAMER ACETATE
     Indication: MULTIPLE SCLEROSIS
     Route: 058
     Dates: start: 20150528, end: 201604

REACTIONS (6)
  - Heart rate decreased [None]
  - Blood pressure decreased [None]
  - Syncope [None]
  - Respiratory arrest [None]
  - Amnesia [None]
  - Cerebrovascular accident [None]
